FAERS Safety Report 7971508-7 (Version None)
Quarter: 2011Q4

REPORT INFORMATION
  Report Type: 
  Country: None (occurrence: None)
  Receive Date: 20111212
  Receipt Date: 20111129
  Transmission Date: 20120403
  Serious: No
  Sender: FDA-Public Use
  Company Number: CA-ELI_LILLY_AND_COMPANY-CA201111008591

PATIENT
  Sex: Female

DRUGS (18)
  1. TRAZODONE HCL [Concomitant]
  2. LORAZEPAM [Concomitant]
  3. RISPERDAL [Concomitant]
  4. ZYPREXA [Suspect]
     Dosage: 25 MG, QD
  5. PAROXETINE HCL [Concomitant]
  6. ZYPREXA [Suspect]
     Dosage: 7.5 MG, EACH EVENING
  7. LOXAPINE [Concomitant]
  8. ZYPREXA [Suspect]
     Indication: SCHIZOAFFECTIVE DISORDER
     Dosage: 2.5 MG, EACH EVENING
  9. ZYPREXA [Suspect]
     Dosage: 15 MG, EACH EVENING
  10. BENZTROPINE MESYLATE [Concomitant]
  11. LEVOTHYROXINE SODIUM [Concomitant]
  12. SEROQUEL [Concomitant]
  13. CLOZAPINE [Concomitant]
  14. DIVALPROEX SODIUM [Concomitant]
  15. PROCYCLIDINE HYDROCHLORIDE 2MG TAB [Concomitant]
  16. ZOLOFT [Concomitant]
  17. LITHIUM CARBONATE [Concomitant]
  18. ZOPICLONE [Concomitant]

REACTIONS (7)
  - HYPERCHOLESTEROLAEMIA [None]
  - OVERDOSE [None]
  - MONOCYTE COUNT INCREASED [None]
  - HYPERGLYCAEMIA [None]
  - ASTIGMATISM [None]
  - PRESBYOPIA [None]
  - WEIGHT INCREASED [None]
